FAERS Safety Report 20821717 (Version 1)
Quarter: 2022Q2

REPORT INFORMATION
  Report Type: Spontaneous
  Country: CN (occurrence: CN)
  Receive Date: 20220512
  Receipt Date: 20220512
  Transmission Date: 20220721
  Serious: Yes (Other)
  Sender: FDA-Public Use
  Company Number: CN-GLAXOSMITHKLINE-CNCH2022APC016430

PATIENT
  Age: 48 Year
  Sex: Male
  Weight: 63 kg

DRUGS (5)
  1. DICLOFENAC SODIUM [Suspect]
     Active Substance: DICLOFENAC SODIUM
     Indication: Arthralgia
     Dosage: 75 MG, QD
     Route: 048
     Dates: start: 20220423, end: 20220424
  2. DICLOFENAC SODIUM [Suspect]
     Active Substance: DICLOFENAC SODIUM
     Indication: Pain
  3. OMEPRAZOLE ENTERIC-COATED [Concomitant]
     Indication: Hyperchlorhydria
     Dosage: 20 MG, QD
     Route: 048
     Dates: start: 20220423, end: 20220424
  4. OMEPRAZOLE ENTERIC-COATED [Concomitant]
     Indication: Gastrointestinal disorder prophylaxis
  5. ZHENGQING FENGTONGNING PIAN [Concomitant]
     Indication: Pain
     Dosage: 150 MG, QD
     Route: 042
     Dates: start: 20220423, end: 20220424

REACTIONS (5)
  - Anaphylactic shock [Recovering/Resolving]
  - Dizziness [Recovering/Resolving]
  - Asthenia [Recovered/Resolved]
  - Hyperhidrosis [Recovered/Resolved]
  - Blood pressure decreased [Unknown]

NARRATIVE: CASE EVENT DATE: 20220424
